FAERS Safety Report 23382424 (Version 1)
Quarter: 2024Q1

REPORT INFORMATION
  Report Type: Spontaneous
  Country: US (occurrence: None)
  Receive Date: 20240108
  Receipt Date: 20240108
  Transmission Date: 20240409
  Serious: No
  Sender: FDA-Public Use
  Company Number: None

PATIENT
  Age: 43 Year
  Sex: Female

DRUGS (1)
  1. OJJAARA [Suspect]
     Active Substance: MOMELOTINIB DIHYDROCHLORIDE MONOHYDRATE
     Dosage: FREQUENCY : DAILY;?
     Route: 048
     Dates: start: 20231018

REACTIONS (5)
  - Tachycardia [None]
  - Rash macular [None]
  - Rash erythematous [None]
  - Rash [None]
  - Rash [None]

NARRATIVE: CASE EVENT DATE: 20231018
